FAERS Safety Report 20609697 (Version 2)
Quarter: 2022Q3

REPORT INFORMATION
  Report Type: Other
  Country: US (occurrence: None)
  Receive Date: 20220318
  Receipt Date: 20220929
  Transmission Date: 20221027
  Serious: Yes (Hospitalization, Other)
  Sender: FDA-Public Use
  Company Number: US-ROCHE-3004288

PATIENT
  Age: 68 Year
  Sex: Male

DRUGS (10)
  1. HEMLIBRA [Suspect]
     Active Substance: EMICIZUMAB-KXWH
     Indication: Factor VIII deficiency
     Dosage: STRENGTH: 150MG/ML??INJECT 1.24 ML
     Route: 058
     Dates: start: 20211222
  2. ALBUTEROL [Concomitant]
     Active Substance: ALBUTEROL
  3. ATORVASTATIN [Concomitant]
     Active Substance: ATORVASTATIN
  4. DARUNAVIR [Concomitant]
     Active Substance: DARUNAVIR
  5. LOSARTAN [Concomitant]
     Active Substance: LOSARTAN
  6. NIFEDIPINE [Concomitant]
     Active Substance: NIFEDIPINE
  7. RITONAVIR [Concomitant]
     Active Substance: RITONAVIR
  8. TRIAMCINOLONE [Concomitant]
     Active Substance: TRIAMCINOLONE
  9. ELOCTATE [Concomitant]
     Active Substance: (1-743)-(1638-2332)-BLOOD-COAGULATION FACTOR VIII (SYNTHETIC HUMAN) FUSION PROTEIN WITH IMMUNOGLOBUL
  10. RALTEGRAVIR [Concomitant]
     Active Substance: RALTEGRAVIR

REACTIONS (2)
  - Haemoptysis [Not Recovered/Not Resolved]
  - Aspergillus infection [Unknown]

NARRATIVE: CASE EVENT DATE: 20220907
